FAERS Safety Report 7601396-X (Version None)
Quarter: 2011Q2

REPORT INFORMATION
  Report Type: 
  Country: None (occurrence: None)
  Receive Date: 20110629
  Receipt Date: 20110405
  Transmission Date: 20111010
  Serious: Yes (Disabling)
  Sender: FDA-Public Use
  Company Number: WAES 1104USA00581

PATIENT
  Age: 60 Year
  Sex: Female

DRUGS (5)
  1. HYZAAR [Suspect]
     Dosage: 100-25 MG/DAILY/PO
     Route: 048
     Dates: start: 20100401
  2. ATENOLOL [Concomitant]
  3. XANAX [Concomitant]
  4. HYZAAR [Suspect]
     Dosage: 100 MG/DAILY/PO
     Route: 048
     Dates: end: 20100401
  5. NORTRIPTYLINE HCL [Concomitant]

REACTIONS (2)
  - DIARRHOEA [None]
  - ABDOMINAL DISCOMFORT [None]
